FAERS Safety Report 13814939 (Version 1)
Quarter: 2017Q3

REPORT INFORMATION
  Report Type: Spontaneous
  Country: TR (occurrence: TR)
  Receive Date: 20170731
  Receipt Date: 20170731
  Transmission Date: 20171127
  Serious: Yes (Other)
  Sender: FDA-Public Use
  Company Number: TR-ASPEN PHARMA TRADING LIMITED US-AG-2017-002443

PATIENT
  Age: 19 Year
  Sex: Male

DRUGS (4)
  1. FLUDARABINE [Suspect]
     Active Substance: FLUDARABINE PHOSPHATE
     Indication: BONE MARROW CONDITIONING REGIMEN
     Route: 065
  2. BUSULFAN. [Suspect]
     Active Substance: BUSULFAN
     Indication: BONE MARROW CONDITIONING REGIMEN
     Route: 065
  3. SODIUM CHLORIDE. [Concomitant]
     Active Substance: SODIUM CHLORIDE
     Indication: HYPOPHAGIA
     Dosage: SALINE SOLUTION
     Route: 042
  4. GLUCOSE [Concomitant]
     Active Substance: DEXTROSE
     Indication: HYPOPHAGIA
     Route: 042

REACTIONS (1)
  - Wernicke^s encephalopathy [Unknown]
